FAERS Safety Report 14280924 (Version 1)
Quarter: 2017Q4

REPORT INFORMATION
  Report Type: Spontaneous
  Country: US (occurrence: US)
  Receive Date: 20171213
  Receipt Date: 20171213
  Transmission Date: 20180321
  Serious: Yes (Hospitalization, Other)
  Sender: FDA-Public Use
  Company Number: US-GLAXOSMITHKLINE-US2017GSK187655

PATIENT
  Age: 64 Year
  Sex: Male

DRUGS (4)
  1. CHANTIX [Suspect]
     Active Substance: VARENICLINE TARTRATE
     Indication: EX-TOBACCO USER
     Dosage: 0.5 MG X 11
     Route: 048
     Dates: start: 20170912, end: 20170920
  2. CHANTIX [Suspect]
     Active Substance: VARENICLINE TARTRATE
     Dosage: 1 MG X42
     Route: 048
  3. IMITREX [Suspect]
     Active Substance: SUMATRIPTAN SUCCINATE
     Indication: PRODUCT USED FOR UNKNOWN INDICATION
     Dosage: UNK
  4. ASPIRIN. [Suspect]
     Active Substance: ASPIRIN
     Indication: PRODUCT USED FOR UNKNOWN INDICATION
     Dosage: UNK

REACTIONS (5)
  - Cognitive disorder [Recovering/Resolving]
  - Major depression [Not Recovered/Not Resolved]
  - Confusional state [Recovering/Resolving]
  - Paranoia [Unknown]
  - Emotional disorder [Recovering/Resolving]

NARRATIVE: CASE EVENT DATE: 20170920
